FAERS Safety Report 10918712 (Version 2)
Quarter: 2015Q2

REPORT INFORMATION
  Report Type: Spontaneous
  Country: US (occurrence: US)
  Receive Date: 20150316
  Receipt Date: 20150611
  Transmission Date: 20150821
  Serious: No
  Sender: FDA-Public Use
  Company Number: US-ASTELLAS-2015US005052

PATIENT
  Age: 93 Year
  Sex: Male

DRUGS (1)
  1. XTANDI [Suspect]
     Active Substance: ENZALUTAMIDE
     Indication: PROSTATE CANCER
     Route: 048
     Dates: start: 20150116

REACTIONS (15)
  - Asthenia [Unknown]
  - Chromaturia [Unknown]
  - Chest pain [Recovered/Resolved]
  - Secretion discharge [Unknown]
  - Hypersensitivity [Unknown]
  - Ligament disorder [Unknown]
  - Musculoskeletal discomfort [Unknown]
  - Constipation [Unknown]
  - Tremor [Unknown]
  - Abdominal pain lower [Unknown]
  - Productive cough [Unknown]
  - Pain [Unknown]
  - Dizziness [Unknown]
  - Pollakiuria [Unknown]
  - Rhinorrhoea [Unknown]

NARRATIVE: CASE EVENT DATE: 20150220
